FAERS Safety Report 11341250 (Version 1)
Quarter: 2015Q3

REPORT INFORMATION
  Report Type: Spontaneous
  Country: US (occurrence: None)
  Receive Date: 20150629
  Receipt Date: 20150629
  Transmission Date: 20151125
  Serious: No
  Sender: FDA-Public Use
  Company Number: A-NJ2015-110968

PATIENT
  Age: 62 Year
  Sex: Female

DRUGS (3)
  1. VELETRI [Suspect]
     Active Substance: EPOPROSTENOL
     Indication: PULMONARY ARTERIAL HYPERTENSION
     Dosage: PER MIN.
     Route: 042
     Dates: start: 20140729
  2. REVATIO (SILDENAFIL CITRATE) [Concomitant]
  3. OPSUMIT [Suspect]
     Active Substance: MACITENTAN
     Indication: PULMONARY ARTERIAL HYPERTENSION
     Route: 048
     Dates: start: 20141202

REACTIONS (5)
  - Paranasal sinus hypersecretion [None]
  - Sinus congestion [None]
  - Eye infection [None]
  - Middle ear effusion [None]
  - Oropharyngeal pain [None]

NARRATIVE: CASE EVENT DATE: 20150102
